FAERS Safety Report 4362488-4 (Version None)
Quarter: 2004Q2

REPORT INFORMATION
  Report Type: 
  Country: None (occurrence: None)
  Receive Date: 20040518
  Receipt Date: 20040503
  Transmission Date: 20050107
  Serious: Yes (Hospitalization)
  Sender: FDA-Public Use
  Company Number: 193009

PATIENT
  Age: 46 Year
  Sex: Male
  Weight: 81.6475 kg

DRUGS (1)
  1. AVONEX ^BIOGEN^ [Suspect]
     Indication: MULTIPLE SCLEROSIS
     Dosage: 30 MCG QW IM
     Route: 030
     Dates: start: 20010719

REACTIONS (4)
  - CYSTITIS [None]
  - DIFFICULTY IN WALKING [None]
  - PROGRESSIVE MULTIPLE SCLEROSIS [None]
  - URINARY RETENTION [None]
